FAERS Safety Report 23457081 (Version 1)
Quarter: 2024Q1

REPORT INFORMATION
  Report Type: Spontaneous
  Country: ES (occurrence: ES)
  Receive Date: 20240130
  Receipt Date: 20240130
  Transmission Date: 20240409
  Serious: Yes (Hospitalization)
  Sender: FDA-Public Use
  Company Number: None

PATIENT
  Age: 39 Year
  Sex: Female

DRUGS (11)
  1. OMEPRAZOLE [Interacting]
     Active Substance: OMEPRAZOLE
     Indication: Epigastric discomfort
     Dosage: C/12H?DAILY DOSE: 20 MILLIGRAM
     Route: 048
     Dates: start: 202009
  2. DESMOPRESSIN ACETATE [Interacting]
     Active Substance: DESMOPRESSIN ACETATE
     Indication: Hypopituitarism
     Dosage: DAILY DOSE: 0.2 MILLIGRAM
     Route: 045
     Dates: start: 201706, end: 20230920
  3. DESMOPRESSIN ACETATE [Interacting]
     Active Substance: DESMOPRESSIN ACETATE
     Indication: Hypopituitarism
     Dosage: SPRAY 1.5 PUFF IN THE MORNING AND 1 PUFF AT NIGHT (SELF-REGULATED BY EYE ACCORDING TO URINE VOLUME)
  4. CLONAZEPAM [Suspect]
     Active Substance: CLONAZEPAM
  5. KEPPRA [Concomitant]
     Active Substance: LEVETIRACETAM
     Indication: Epilepsy
     Dosage: DAILY DOSE: 2 GRAM
     Route: 048
     Dates: start: 20190912
  6. VIMPAT [Concomitant]
     Active Substance: LACOSAMIDE
     Indication: Epilepsy
     Dosage: DAILY DOSE: 200 MILLIGRAM
     Route: 048
     Dates: start: 202002
  7. LEVOTHYROXINE SODIUM [Concomitant]
     Active Substance: LEVOTHYROXINE SODIUM
     Indication: Hypopituitarism
     Dosage: DAILY DOSE: 75 MICROGRAM
     Route: 048
     Dates: start: 201905
  8. HYDROCORTISONE [Concomitant]
     Active Substance: HYDROCORTISONE
     Indication: Hypopituitarism
     Dosage: DAILY DOSE: 30 MILLIGRAM
     Route: 048
     Dates: start: 20160516
  9. CALCIFEDIOL [Concomitant]
     Active Substance: CALCIFEDIOL
  10. BRIVIACT [Concomitant]
     Active Substance: BRIVARACETAM
  11. OTILONIUM BROMIDE [Concomitant]
     Active Substance: OTILONIUM BROMIDE

REACTIONS (1)
  - Hyponatraemia [Recovered/Resolved]

NARRATIVE: CASE EVENT DATE: 20230920
